FAERS Safety Report 15014018 (Version 1)
Quarter: 2018Q2

REPORT INFORMATION
  Report Type: Spontaneous
  Country: RU (occurrence: RU)
  Receive Date: 20180614
  Receipt Date: 20180614
  Transmission Date: 20180711
  Serious: Yes (Hospitalization)
  Sender: FDA-Public Use
  Company Number: RU-SUN PHARMACEUTICAL INDUSTRIES LTD-2018R3-175283

PATIENT
  Age: 30 Year
  Sex: Female
  Weight: 55 kg

DRUGS (2)
  1. CIFRAN CT [Suspect]
     Active Substance: CIPROFLOXACIN\TINIDAZOLE
     Indication: PERICORONITIS
     Dosage: 500 + 600 MG,BID
     Route: 048
     Dates: start: 20170519, end: 20170521
  2. NISE [Concomitant]
     Active Substance: NIMESULIDE
     Indication: PAIN
     Dosage: UNK
     Route: 048
     Dates: start: 20170519, end: 20170521

REACTIONS (6)
  - Fatigue [Recovered/Resolved]
  - Somnolence [Recovered/Resolved]
  - Sneezing [Recovered/Resolved]
  - Angioedema [Recovered/Resolved]
  - Lacrimation increased [Recovered/Resolved]
  - Rhinitis [Recovered/Resolved]

NARRATIVE: CASE EVENT DATE: 20170519
